FAERS Safety Report 6744705-6 (Version None)
Quarter: 2010Q2

REPORT INFORMATION
  Report Type: 
  Country: None (occurrence: None)
  Receive Date: 20100527
  Receipt Date: 20100518
  Transmission Date: 20101027
  Serious: Yes (Hospitalization)
  Sender: FDA-Public Use
  Company Number: CH-ASTRAZENECA-2010SE22966

PATIENT
  Age: 81 Year
  Sex: Female

DRUGS (4)
  1. SEROQUEL [Suspect]
     Route: 048
     Dates: start: 20091009, end: 20091009
  2. RISPERDAL [Suspect]
     Route: 048
     Dates: start: 20091009, end: 20091009
  3. DISTRANEURIN [Suspect]
     Route: 048
     Dates: start: 20091009, end: 20091009
  4. XANAX [Suspect]
     Route: 048
     Dates: start: 20091009, end: 20091009

REACTIONS (1)
  - INCORRECT DOSE ADMINISTERED [None]
